FAERS Safety Report 16682437 (Version 1)
Quarter: 2019Q3

REPORT INFORMATION
  Report Type: Report from Study
  Country: IT (occurrence: IT)
  Receive Date: 20190808
  Receipt Date: 20190808
  Transmission Date: 20191004
  Serious: Yes (Other)
  Sender: FDA-Public Use
  Company Number: IT-PFIZER INC-2019335968

PATIENT
  Age: 85 Year
  Sex: Female

DRUGS (5)
  1. CYMBALTA [Suspect]
     Active Substance: DULOXETINE HYDROCHLORIDE
     Indication: MIXED ANXIETY AND DEPRESSIVE DISORDER
     Dosage: 60 MG, 1X/DAY
     Dates: start: 20180602, end: 20190602
  2. ENALAPRIL [Concomitant]
     Active Substance: ENALAPRIL
     Dosage: 20 MG, 1X/DAY
  3. RIVOTRIL [Suspect]
     Active Substance: CLONAZEPAM
     Indication: MIXED ANXIETY AND DEPRESSIVE DISORDER
     Dosage: 12 GTT, 1X/DAY
     Dates: start: 20180602, end: 20190602
  4. GABAPENTIN. [Suspect]
     Active Substance: GABAPENTIN
     Indication: MIXED ANXIETY AND DEPRESSIVE DISORDER
     Dosage: 3 DF, 1X/DAY
     Dates: start: 20180602, end: 20190602
  5. LANSOPRAZOLE. [Concomitant]
     Active Substance: LANSOPRAZOLE
     Dosage: UNK

REACTIONS (3)
  - Sopor [Recovering/Resolving]
  - Product use in unapproved indication [Recovered/Resolved]
  - Off label use [Recovered/Resolved]

NARRATIVE: CASE EVENT DATE: 20180602
